FAERS Safety Report 19008906 (Version 3)
Quarter: 2021Q2

REPORT INFORMATION
  Report Type: Spontaneous
  Country: US (occurrence: US)
  Receive Date: 20210315
  Receipt Date: 20210417
  Transmission Date: 20210717
  Serious: No
  Sender: FDA-Public Use
  Company Number: NVSC2021US058035

PATIENT
  Age: 60 Year
  Sex: Male

DRUGS (2)
  1. MAYZENT [Suspect]
     Active Substance: SIPONIMOD
     Indication: PRODUCT USED FOR UNKNOWN INDICATION
     Dosage: UNK
     Route: 065
  2. MAYZENT [Suspect]
     Active Substance: SIPONIMOD
     Dosage: UNK (LAST DOSE)
     Route: 065
     Dates: start: 20210306

REACTIONS (3)
  - Wrong technique in product usage process [Unknown]
  - Product dose omission issue [Unknown]
  - Product availability issue [Unknown]
